FAERS Safety Report 21010804 (Version 1)
Quarter: 2022Q2

REPORT INFORMATION
  Report Type: Other
  Country: None (occurrence: IT)
  Receive Date: 20220627
  Receipt Date: 20220627
  Transmission Date: 20220721
  Serious: Yes (Hospitalization, Other)
  Sender: FDA-Public Use
  Company Number: IT-Breckenridge Pharmaceutical, Inc.-2130307

PATIENT
  Age: 70 Year
  Sex: Male

DRUGS (1)
  1. IMATINIB [Suspect]
     Active Substance: IMATINIB
     Indication: Chronic myeloid leukaemia
     Route: 048

REACTIONS (3)
  - Kaposi^s sarcoma [Recovering/Resolving]
  - Acute kidney injury [Recovered/Resolved]
  - Human herpesvirus 8 infection [Recovering/Resolving]
